FAERS Safety Report 8166323 (Version 8)
Quarter: 2013Q2

REPORT INFORMATION
  Report Type: Report from Study
  Country: US (occurrence: US)
  Receive Date: 20111003
  Receipt Date: 20130502
  Transmission Date: 20140414
  Serious: Yes (Hospitalization)
  Sender: FDA-Public Use
  Company Number: US-JNJFOC-20110910308

PATIENT
  Age: 16 Year
  Sex: Male
  Weight: 41.2 kg

DRUGS (7)
  1. REMICADE [Suspect]
     Indication: INFLAMMATORY BOWEL DISEASE
     Route: 042
     Dates: start: 20091027
  2. AZATHIOPRINE [Suspect]
     Indication: INFLAMMATORY BOWEL DISEASE
     Route: 065
  3. 5-ASA [Concomitant]
     Indication: INFLAMMATORY BOWEL DISEASE
  4. FLAGYL [Concomitant]
     Indication: PRODUCT USED FOR UNKNOWN INDICATION
  5. CALCIUM [Concomitant]
     Indication: PRODUCT USED FOR UNKNOWN INDICATION
  6. FERROUS SULFATE [Concomitant]
     Indication: PRODUCT USED FOR UNKNOWN INDICATION
  7. PREDNISONE [Concomitant]
     Indication: INFLAMMATORY BOWEL DISEASE

REACTIONS (2)
  - Weight decreased [Not Recovered/Not Resolved]
  - Treatment noncompliance [Recovered/Resolved with Sequelae]
